FAERS Safety Report 8529642-9 (Version None)
Quarter: 2012Q3

REPORT INFORMATION
  Report Type: 
  Country: None (occurrence: None)
  Receive Date: 20120723
  Receipt Date: 20120712
  Transmission Date: 20120928
  Serious: Yes (Hospitalization)
  Sender: FDA-Public Use
  Company Number: NL-JNJFOC-20111104120

PATIENT
  Sex: Male
  Weight: 52.9 kg

DRUGS (5)
  1. REMICADE [Suspect]
     Indication: CROHN'S DISEASE
     Route: 042
     Dates: start: 20100415, end: 20101223
  2. HUMIRA [Suspect]
     Indication: CROHN'S DISEASE
  3. HUMIRA [Suspect]
     Dates: start: 20120111
  4. HUMIRA [Suspect]
     Dates: start: 20111005
  5. MESALAMINE [Suspect]
     Indication: PRODUCT USED FOR UNKNOWN INDICATION
     Route: 048

REACTIONS (1)
  - CROHN'S DISEASE [None]
